FAERS Safety Report 6960367-7 (Version None)
Quarter: 2010Q3

REPORT INFORMATION
  Report Type: 
  Country: None (occurrence: None)
  Receive Date: 20100823
  Receipt Date: 20100709
  Transmission Date: 20110219
  Serious: No
  Sender: FDA-Public Use
  Company Number: 015368

PATIENT
  Sex: Male
  Weight: 100 kg

DRUGS (15)
  1. CIMZIA [Suspect]
     Indication: CROHN'S DISEASE
     Dosage: (400 MG 1X/2 WEEKS SUBCUTANEOUS)
     Route: 058
     Dates: start: 20100701
  2. OMEPRAZOLE [Concomitant]
  3. ASPIRIN /01428701/ [Concomitant]
  4. WARFARIN SODIUM [Concomitant]
  5. SERTRALINE HYDROCHLORIDE [Concomitant]
  6. MACRODANTIN [Concomitant]
  7. METHADONE HCL [Concomitant]
  8. OXYBUTYNIN [Concomitant]
  9. OXYCODONE HCL [Concomitant]
  10. VITAMIN B12 /00056201/ [Concomitant]
  11. PHENAZOPYRIDINE HCL TAB [Concomitant]
  12. TRAZODONE HCL [Concomitant]
  13. MULTI-VITAMINS [Concomitant]
  14. C-VITAMIN [Concomitant]
  15. CRANBERRY /01512301/ [Concomitant]

REACTIONS (3)
  - JOINT SWELLING [None]
  - PAIN [None]
  - PYREXIA [None]
